FAERS Safety Report 5123812-8 (Version None)
Quarter: 2006Q3

REPORT INFORMATION
  Report Type: 
  Country: None (occurrence: None)
  Receive Date: 20060811
  Receipt Date: 20060702
  Transmission Date: 20061208
  Serious: No
  Sender: FDA-Public Use
  Company Number: 200615672US

PATIENT
  Age: 62 Year
  Sex: Female

DRUGS (1)
  1. APIDRA [Suspect]
     Indication: DIABETES MELLITUS NON-INSULIN-DEPENDENT
     Dosage: 10 U
     Dates: start: 20060701

REACTIONS (4)
  - BLOOD GLUCOSE INCREASED [None]
  - DIZZINESS [None]
  - DYSGEUSIA [None]
  - FEELING JITTERY [None]
